FAERS Safety Report 9922680 (Version 2)
Quarter: 2014Q2

REPORT INFORMATION
  Report Type: Spontaneous
  Country: IT (occurrence: IT)
  Receive Date: 20140225
  Receipt Date: 20140627
  Transmission Date: 20141212
  Serious: Yes (Hospitalization)
  Sender: FDA-Public Use
  Company Number: IT-PFIZER INC-2014050173

PATIENT
  Age: 74 Year
  Sex: Male

DRUGS (8)
  1. MEDROL [Suspect]
     Indication: BRAIN NEOPLASM
     Dosage: 6 DF, DAILY
     Route: 048
     Dates: start: 20131217
  2. DEPAKIN [Concomitant]
     Indication: EPILEPSY
     Dosage: 2 DF, UNK
     Route: 048
     Dates: start: 20131217, end: 20140103
  3. ANTRA [Concomitant]
     Dosage: 40 MG, UNK
     Route: 048
     Dates: start: 20131126, end: 20131219
  4. FINASTID ^NEOPHARMED^ [Concomitant]
     Dosage: 2 DF, UNK
     Route: 048
     Dates: start: 20131126, end: 20131219
  5. ZOCOR [Concomitant]
     Dosage: 20 MG, UNK
     Route: 048
     Dates: start: 20131126, end: 20131219
  6. ISOPTIN [Concomitant]
     Dosage: 160 MG, UNK
     Route: 048
     Dates: start: 20131126, end: 20131219
  7. ZYLORIC [Concomitant]
     Dosage: 150 MG, UNK
     Route: 048
     Dates: start: 20131126, end: 20131219
  8. RISPERDAL [Concomitant]
     Dosage: 0.5 ML, UNK
     Route: 048
     Dates: start: 20131126, end: 20131219

REACTIONS (1)
  - Diabetes mellitus [Recovered/Resolved with Sequelae]
